FAERS Safety Report 6618472 (Version 2)
Quarter: 2014Q2

REPORT INFORMATION
  Report Type: Spontaneous
  Country: US (occurrence: US)
  Receive Date: 20080418
  Receipt Date: 20140529
  Transmission Date: 20141212
  Serious: Yes (Other)
  Sender: FDA-Public Use
  Company Number: US-ASTRAZENECA-2007UW17601

PATIENT
  Age: 58 Year
  Sex: Female
  Weight: 69.9 kg

DRUGS (16)
  1. TOPROL XL [Suspect]
     Indication: PALPITATIONS
     Route: 048
     Dates: start: 2003, end: 2007
  2. TOPROL XL [Suspect]
     Indication: BLOOD PRESSURE ABNORMAL
     Route: 048
     Dates: start: 2003, end: 2007
  3. TOPROL XL [Suspect]
     Indication: PANIC ATTACK
     Route: 048
     Dates: start: 2003, end: 2007
  4. TOPROL XL [Suspect]
     Indication: PALPITATIONS
     Route: 048
     Dates: start: 2007
  5. TOPROL XL [Suspect]
     Indication: BLOOD PRESSURE ABNORMAL
     Route: 048
     Dates: start: 2007
  6. TOPROL XL [Suspect]
     Indication: PANIC ATTACK
     Route: 048
     Dates: start: 2007
  7. TOPROL XL [Suspect]
     Indication: PALPITATIONS
     Dosage: SANDOZ 50 MG EVERY AM AND 25 MG EVERY EVENING
     Route: 065
  8. TOPROL XL [Suspect]
     Indication: BLOOD PRESSURE ABNORMAL
     Dosage: SANDOZ 50 MG EVERY AM AND 25 MG EVERY EVENING
     Route: 065
  9. TOPROL XL [Suspect]
     Indication: PANIC ATTACK
     Dosage: SANDOZ 50 MG EVERY AM AND 25 MG EVERY EVENING
     Route: 065
  10. TOPROL XL [Suspect]
     Indication: PALPITATIONS
     Dosage: 50 MG EVERY AM AND 25 MG EVERY EVENING
     Route: 048
  11. TOPROL XL [Suspect]
     Indication: BLOOD PRESSURE ABNORMAL
     Dosage: 50 MG EVERY AM AND 25 MG EVERY EVENING
     Route: 048
  12. TOPROL XL [Suspect]
     Indication: PANIC ATTACK
     Dosage: 50 MG EVERY AM AND 25 MG EVERY EVENING
     Route: 048
  13. LIBRIUM [Concomitant]
     Indication: ANXIETY
  14. AMLODIPINE BESYLOTE [Concomitant]
     Indication: BLOOD PRESSURE ABNORMAL
  15. TYLENOL [Concomitant]
     Indication: PAIN IN EXTREMITY
     Dosage: ONCE
  16. LITHIUM [Concomitant]

REACTIONS (28)
  - Road traffic accident [Recovered/Resolved]
  - Limb injury [Recovered/Resolved]
  - Weight decreased [Recovered/Resolved]
  - Migraine [Unknown]
  - Weight increased [Unknown]
  - Memory impairment [Unknown]
  - Dizziness [Unknown]
  - Hypertension [Recovered/Resolved]
  - Heart rate decreased [Recovered/Resolved]
  - Fatigue [Recovered/Resolved]
  - Somnolence [Recovered/Resolved]
  - Feeling hot [Recovered/Resolved]
  - Malaise [Recovered/Resolved]
  - Dysphagia [Recovered/Resolved]
  - Headache [Unknown]
  - Tooth disorder [Unknown]
  - Facial pain [Unknown]
  - Temporomandibular joint syndrome [Unknown]
  - Anxiety [Recovered/Resolved]
  - Irritable bowel syndrome [Recovered/Resolved]
  - Panic attack [Recovered/Resolved]
  - Balance disorder [Recovered/Resolved]
  - Adverse drug reaction [Unknown]
  - Insomnia [Recovered/Resolved]
  - Migraine with aura [Unknown]
  - Drug effect incomplete [Unknown]
  - Drug ineffective [Unknown]
  - Intentional product misuse [Not Recovered/Not Resolved]
